FAERS Safety Report 9057246 (Version 1)
Quarter: 2013Q1

REPORT INFORMATION
  Report Type: Spontaneous
  Country: US (occurrence: US)
  Receive Date: 20130131
  Receipt Date: 20130131
  Transmission Date: 20140127
  Serious: Yes (Disabling, Other)
  Sender: FDA-Public Use
  Company Number: US-GLAXOSMITHKLINE-A1010286A

PATIENT
  Sex: 0

DRUGS (2)
  1. FLUTICASONE PROPIONATE [Suspect]
     Indication: SINUSITIS
     Dosage: 2SPR PER DAY
     Route: 045
  2. ANTIBIOTICS [Concomitant]

REACTIONS (3)
  - Headache [Recovered/Resolved]
  - Sinus headache [Recovered/Resolved]
  - Rhinalgia [Recovered/Resolved]
